FAERS Safety Report 5605827-6 (Version None)
Quarter: 2008Q1

REPORT INFORMATION
  Report Type: 
  Country: None (occurrence: None)
  Receive Date: 20080129
  Receipt Date: 20080122
  Transmission Date: 20080703
  Serious: Yes (Congenital Anomaly)
  Sender: FDA-Public Use
  Company Number: PHFR2008GB00636

PATIENT

DRUGS (6)
  1. ESTRADERM [Suspect]
     Route: 064
  2. CODEINE PHOSPHATE [Concomitant]
     Route: 064
  3. LEVOTHYROXINE SODIUM [Concomitant]
     Route: 064
  4. MICROGYNON [Concomitant]
     Route: 064
  5. ESTRADIOL [Concomitant]
     Route: 064
  6. CYCLOGEST ^COLLINS^ [Suspect]
     Route: 064

REACTIONS (6)
  - ANAL ATRESIA [None]
  - DRUG EXPOSURE DURING PREGNANCY [None]
  - DUODENAL ATRESIA [None]
  - GENITALIA EXTERNAL AMBIGUOUS [None]
  - HYPOSPADIAS [None]
  - SCROTAL DISORDER [None]
